FAERS Safety Report 16644156 (Version 2)
Quarter: 2019Q3

REPORT INFORMATION
  Report Type: Report from Study
  Country: MX (occurrence: MX)
  Receive Date: 20190729
  Receipt Date: 20190812
  Transmission Date: 20191004
  Serious: Yes (Hospitalization)
  Sender: FDA-Public Use
  Company Number: PHHY2019MX175435

PATIENT
  Age: 52 Year
  Sex: Male
  Weight: 80 kg

DRUGS (4)
  1. ENTRESTO [Suspect]
     Active Substance: SACUBITRIL\VALSARTAN
     Indication: CARDIAC FAILURE
     Dosage: 100 MG, BID (EVERY 12 HOURS)
     Route: 048
  2. ENTRESTO [Suspect]
     Active Substance: SACUBITRIL\VALSARTAN
     Dosage: 0.5 DF (100 MG), QD
     Route: 048
  3. METOPROLOL. [Concomitant]
     Active Substance: METOPROLOL
     Indication: HYPERTENSION
     Dosage: 0.5 DF, Q12H
     Route: 048
     Dates: start: 20190702
  4. IMDUR [Concomitant]
     Active Substance: ISOSORBIDE MONONITRATE
     Indication: PRODUCT USED FOR UNKNOWN INDICATION
     Dosage: 0.5 DF, QD
     Route: 048
     Dates: start: 20190702

REACTIONS (6)
  - Prescribed underdose [Unknown]
  - Inappropriate schedule of product administration [Unknown]
  - Cardiac disorder [Not Recovered/Not Resolved]
  - Hypotension [Recovered/Resolved]
  - Wrong technique in product usage process [Unknown]
  - Chest pain [Not Recovered/Not Resolved]

NARRATIVE: CASE EVENT DATE: 20190722
